FAERS Safety Report 8539649-3 (Version None)
Quarter: 2012Q3

REPORT INFORMATION
  Report Type: 
  Country: None (occurrence: None)
  Receive Date: 20120726
  Receipt Date: 20120725
  Transmission Date: 20120928
  Serious: Yes (Other)
  Sender: FDA-Public Use
  Company Number: US-COVIDIEN/TYCO HEALTHCARE/MALLINCKRODT-T201202796

PATIENT
  Sex: Male

DRUGS (2)
  1. EXALGO [Suspect]
     Indication: BACK PAIN
     Dosage: 12 MG, QD
     Route: 048
     Dates: start: 20120629, end: 20120709
  2. HYDROCODONE [Concomitant]
     Dosage: 6-8 TABS PER DAY

REACTIONS (2)
  - DRUG DIVERSION [None]
  - SKIN ULCER [None]
